FAERS Safety Report 24666978 (Version 1)
Quarter: 2024Q4

REPORT INFORMATION
  Report Type: Spontaneous
  Country: PL (occurrence: PL)
  Receive Date: 20241126
  Receipt Date: 20241126
  Transmission Date: 20250114
  Serious: Yes (Death, Life-Threatening)
  Sender: MYLAN
  Company Number: PL-002147023-NVSC2022PL232471

PATIENT
  Age: 67 Year
  Sex: Male
  Weight: 96.7 kg

DRUGS (1)
  1. ABIRATERONE [Suspect]
     Active Substance: ABIRATERONE\ABIRATERONE ACETATE
     Indication: Prostate cancer metastatic
     Dosage: 500 MILLIGRAM, BID (1000 MG, QD)
     Route: 048
     Dates: start: 20220119

REACTIONS (1)
  - Cerebrovascular accident [Fatal]

NARRATIVE: CASE EVENT DATE: 20221014
